FAERS Safety Report 14582624 (Version 1)
Quarter: 2018Q1

REPORT INFORMATION
  Report Type: Spontaneous
  Country: US (occurrence: US)
  Receive Date: 20180227
  Receipt Date: 20180227
  Transmission Date: 20180509
  Serious: Yes (Other)
  Sender: FDA-Public Use
  Company Number: None

PATIENT
  Sex: Female

DRUGS (11)
  1. VITAMIN C [Concomitant]
     Active Substance: ASCORBIC ACID
  2. OCALIVA [Suspect]
     Active Substance: OBETICHOLIC ACID
     Indication: PRIMARY BILIARY CHOLANGITIS
     Route: 048
     Dates: start: 20170928
  3. PROPRANOLOL [Concomitant]
     Active Substance: PROPRANOLOL HYDROCHLORIDE
  4. TYLENOL [Concomitant]
     Active Substance: ACETAMINOPHEN
  5. CALCIUM CARB [Concomitant]
     Active Substance: CALCIUM CARBONATE
  6. PROBIOTIC [Concomitant]
     Active Substance: PROBIOTICS NOS
  7. MULTIVIT/FL [Concomitant]
  8. URSODIOL. [Concomitant]
     Active Substance: URSODIOL
  9. VITAMIN A [Concomitant]
     Active Substance: VITAMIN A
  10. VITAMIN D3 [Concomitant]
     Active Substance: CHOLECALCIFEROL
  11. VITAMIN E [Concomitant]
     Active Substance: .ALPHA.-TOCOPHEROL

REACTIONS (4)
  - Headache [None]
  - Drug dose omission [None]
  - Pruritus [None]
  - Insurance issue [None]
